FAERS Safety Report 4652240-4 (Version None)
Quarter: 2005Q2

REPORT INFORMATION
  Report Type: 
  Country: None (occurrence: None)
  Receive Date: 20050502
  Receipt Date: 20050418
  Transmission Date: 20051028
  Serious: Yes (Hospitalization)
  Sender: FDA-Public Use
  Company Number: 2005063069

PATIENT
  Age: 63 Year
  Sex: Male

DRUGS (12)
  1. CELEBREX [Suspect]
     Indication: ARTHROPATHY
     Dosage: 1 DOSE FORM (DAILY),ORAL
     Route: 048
     Dates: start: 20041101, end: 20050215
  2. CELEBREX [Suspect]
     Indication: PSORIASIS
     Dosage: 1 DOSE FORM (DAILY),ORAL
     Route: 048
     Dates: start: 20041101, end: 20050215
  3. TRAMADOL HCL [Suspect]
     Indication: ARTHROPATHY
     Dosage: ORAL
     Route: 048
     Dates: end: 20050215
  4. TRAMADOL HCL [Suspect]
     Indication: PSORIASIS
     Dosage: ORAL
     Route: 048
     Dates: end: 20050215
  5. LEFLUNOMIDE [Suspect]
     Indication: ARTHROPATHY
     Dosage: 1 DOSE FORM (DAILY), ORAL
     Route: 048
     Dates: start: 20041201, end: 20050108
  6. LEFLUNOMIDE [Suspect]
     Indication: PSORIASIS
     Dosage: 1 DOSE FORM (DAILY), ORAL
     Route: 048
     Dates: start: 20041201, end: 20050108
  7. METFORMIN EMBONATE (METFORMIN EMBONATE) [Concomitant]
  8. LANSOPRAZOLE [Concomitant]
  9. REPAGLINIDE (REPAGLINIDE) [Concomitant]
  10. VERAPAMIL HCL [Concomitant]
  11. PRAVASTATIN SODIUM [Concomitant]
  12. ACETAMINOPHEN [Concomitant]

REACTIONS (3)
  - ABDOMINAL PAIN [None]
  - DIARRHOEA [None]
  - PYREXIA [None]
